FAERS Safety Report 6526079-9 (Version None)
Quarter: 2010Q1

REPORT INFORMATION
  Report Type: 
  Country: None (occurrence: None)
  Receive Date: 20100104
  Receipt Date: 20091226
  Transmission Date: 20100710
  Serious: Yes (Hospitalization, Other)
  Sender: FDA-Public Use
  Company Number: US-B.I. PHARMACEUTICALS,INC./RIDGEFIELD-2009-BP-14829BP

PATIENT
  Age: 45 Year
  Sex: Male

DRUGS (1)
  1. APTIVUS/RITONAVIR CAPSULES [Suspect]
     Indication: HIV INFECTION
     Dosage: 1000 MG

REACTIONS (2)
  - EXTRADURAL HAEMATOMA [None]
  - SUBDURAL HAEMATOMA [None]
